FAERS Safety Report 8327257-9 (Version None)
Quarter: 2012Q2

REPORT INFORMATION
  Report Type: 
  Country: None (occurrence: None)
  Receive Date: 20120502
  Receipt Date: 20120425
  Transmission Date: 20120825
  Serious: Yes (Other)
  Sender: FDA-Public Use
  Company Number: SE-AMGEN-SWESP2012026254

PATIENT
  Sex: Female

DRUGS (2)
  1. FASLODEX                           /01503001/ [Concomitant]
  2. XGEVA [Suspect]
     Indication: PROPHYLAXIS

REACTIONS (2)
  - RASH [None]
  - NEOPLASM MALIGNANT [None]
